FAERS Safety Report 23014978 (Version 3)
Quarter: 2024Q1

REPORT INFORMATION
  Report Type: Report from Study
  Country: US (occurrence: US)
  Receive Date: 20231002
  Receipt Date: 20240129
  Transmission Date: 20240409
  Serious: Yes (Hospitalization)
  Sender: FDA-Public Use
  Company Number: US-002147023-NVSC2023US211744

PATIENT
  Age: 38 Year
  Sex: Female

DRUGS (2)
  1. ILARIS [Suspect]
     Active Substance: CANAKINUMAB
     Indication: Still^s disease
     Dosage: 150 MG, OTHER, EVERY 4 WEEKS
     Route: 058
     Dates: start: 202112
  2. ILARIS [Suspect]
     Active Substance: CANAKINUMAB
     Dosage: 150 MG, EVERY 4 WEEKS
     Route: 058
     Dates: start: 20211210, end: 202208

REACTIONS (2)
  - Immune thrombocytopenia [Unknown]
  - Headache [Unknown]

NARRATIVE: CASE EVENT DATE: 20220901
